FAERS Safety Report 10044476 (Version 2)
Quarter: 2014Q2

REPORT INFORMATION
  Report Type: Spontaneous
  Country: FR (occurrence: FR)
  Receive Date: 20140328
  Receipt Date: 20140404
  Transmission Date: 20141212
  Serious: Yes (Hospitalization)
  Sender: FDA-Public Use
  Company Number: FR-ASTRAZENECA-2014SE20745

PATIENT
  Age: 834 Month
  Sex: Male

DRUGS (3)
  1. HYTACAND [Suspect]
     Indication: HYPERTENSION
     Dosage: 8/12.5 MG DAILY
     Route: 048
     Dates: end: 201403
  2. PREVISCAN [Concomitant]
  3. SIMVASTATIN [Concomitant]
     Dosage: DAILY
     Route: 048
     Dates: end: 201403

REACTIONS (3)
  - Gastrointestinal ulcer [Recovered/Resolved]
  - Gastrointestinal haemorrhage [Recovered/Resolved]
  - Haemoglobin decreased [Recovered/Resolved]
